FAERS Safety Report 8539458 (Version 2)
Quarter: 2019Q4

REPORT INFORMATION
  Report Type: Spontaneous
  Country: US (occurrence: US)
  Receive Date: 20120501
  Receipt Date: 20191230
  Transmission Date: 20200122
  Serious: No
  Sender: FDA-Public Use
  Company Number: US-SANOFI-AVENTIS-2012SA025232

PATIENT
  Age: 73 Year
  Sex: Female

DRUGS (4)
  1. APIDRA [Suspect]
     Active Substance: INSULIN GLULISINE
     Indication: TYPE 2 DIABETES MELLITUS
     Dosage: UNK
     Dates: start: 2007
  2. APIDRA [Suspect]
     Active Substance: INSULIN GLULISINE
     Dosage: 76 IU, QD
     Route: 065
  3. APIDRA [Suspect]
     Active Substance: INSULIN GLULISINE
     Dosage: USUALLY TAKES 20 UNITS EXTRA EACH DAY
  4. APIDRA [Suspect]
     Active Substance: INSULIN GLULISINE
     Dosage: 150 IU, QD
     Route: 058
     Dates: start: 2010

REACTIONS (9)
  - Unevaluable event [Unknown]
  - Eye swelling [Not Recovered/Not Resolved]
  - Hypertension [Unknown]
  - Extra dose administered [Unknown]
  - Eye irritation [Not Recovered/Not Resolved]
  - Alopecia [Unknown]
  - Peripheral swelling [Not Recovered/Not Resolved]
  - Swelling face [Not Recovered/Not Resolved]
  - Myalgia [Unknown]

NARRATIVE: CASE EVENT DATE: 2008
